FAERS Safety Report 8479764-6 (Version None)
Quarter: 2012Q2

REPORT INFORMATION
  Report Type: 
  Country: None (occurrence: None)
  Receive Date: 20120620
  Receipt Date: 20120615
  Transmission Date: 20120825
  Serious: Yes (Death)
  Sender: FDA-Public Use
  Company Number: 2012SP027355

PATIENT
  Age: 44 Year
  Sex: Male

DRUGS (2)
  1. CITALOPRAM HYDROBROMIDE [Suspect]
     Indication: DEPRESSION
     Dosage: DEPRESSIVE DISORDER
     Dates: start: 20120401, end: 20120511
  2. VIRAFERONPEG [Suspect]
     Indication: HEPATITIS C
     Dosage: SC
     Route: 058
     Dates: start: 20120401, end: 20120501

REACTIONS (2)
  - ASPHYXIA [None]
  - COMPLETED SUICIDE [None]
